FAERS Safety Report 17229381 (Version 2)
Quarter: 2020Q1

REPORT INFORMATION
  Report Type: Spontaneous
  Country: US (occurrence: US)
  Receive Date: 20200103
  Receipt Date: 20200129
  Transmission Date: 20200409
  Serious: No
  Sender: FDA-Public Use
  Company Number: US-MYLANLABS-2019M1132914

PATIENT
  Sex: Female
  Weight: 53.51 kg

DRUGS (3)
  1. CLOFAZIMINE [Suspect]
     Active Substance: CLOFAZIMINE
     Dosage: 100 MILLIGRAM, 4XW
     Dates: start: 2019
  2. CLOFAZIMINE [Suspect]
     Active Substance: CLOFAZIMINE
     Indication: IMMUNE SYSTEM DISORDER
     Dosage: 100 MILLIGRAM, QD
     Dates: start: 201906
  3. CLOFAZIMINE [Suspect]
     Active Substance: CLOFAZIMINE
     Dosage: 100 MILLIGRAM, 3XW
     Dates: start: 20191120

REACTIONS (1)
  - Hypersensitivity [Unknown]
